FAERS Safety Report 14704543 (Version 1)
Quarter: 2018Q1

REPORT INFORMATION
  Report Type: Spontaneous
  Country: US (occurrence: US)
  Receive Date: 20180329
  Receipt Date: 20180329
  Transmission Date: 20180509
  Serious: Yes (Hospitalization)
  Sender: FDA-Public Use
  Company Number: None

PATIENT
  Age: 30 Year
  Sex: Male

DRUGS (1)
  1. TEMOZOLOMIDE CAP 100MG [Suspect]
     Active Substance: TEMOZOLOMIDE
     Dosage: 500MG ON DAYS 1-3 AN QD ORAL
     Route: 048

REACTIONS (2)
  - Seizure [None]
  - Abdominal pain upper [None]

NARRATIVE: CASE EVENT DATE: 20180228
